FAERS Safety Report 7804550-7 (Version None)
Quarter: 2011Q4

REPORT INFORMATION
  Report Type: 
  Country: None (occurrence: None)
  Receive Date: 20111010
  Receipt Date: 20110929
  Transmission Date: 20120403
  Serious: Yes (Hospitalization, Other)
  Sender: FDA-Public Use
  Company Number: US-BAYER-200940593NA

PATIENT
  Age: 55 Year
  Sex: Female
  Weight: 128 kg

DRUGS (44)
  1. LORTAB [Concomitant]
     Dosage: 5/500 MG EVERY 4 HOURS AS NEEDED FOR PAIN
     Route: 048
  2. LOPRESSOR [Concomitant]
  3. VANCOMYCIN [Concomitant]
     Dosage: 1 GM EVERY 12 HOURS
     Route: 042
     Dates: start: 20070712, end: 20070714
  4. CONTRAST MEDIA [Concomitant]
     Dosage: UNK
     Route: 042
     Dates: start: 20070704, end: 20070704
  5. FLAGYL [Concomitant]
     Dosage: 500 MG, EVERY 8 HOURS
     Route: 048
     Dates: start: 20070705
  6. VANCOMYCIN [Concomitant]
     Dosage: 2 GM EVERY 36 HOURS
     Route: 042
     Dates: start: 20070708
  7. VANCOMYCIN [Concomitant]
     Dosage: 100 MG PRE-OPERATIVELY
     Route: 042
     Dates: start: 20070712, end: 20070712
  8. ROCEPHIN [Concomitant]
     Dosage: 2 GM EVERY 24 HOURS
     Route: 042
     Dates: start: 20070707
  9. PLAVIX [Concomitant]
     Dosage: 300 MG ONE DOSE ONLY
     Route: 048
     Dates: start: 20070705
  10. INSULIN [Concomitant]
     Dosage: 11 UNITS
     Route: 042
     Dates: start: 20070712, end: 20070712
  11. EPINEPHRINE [Concomitant]
     Dosage: 298 MCG
     Route: 042
     Dates: start: 20070712, end: 20070712
  12. PLATELETS [Concomitant]
     Dosage: 275 ML
     Route: 042
     Dates: start: 20070712, end: 20070712
  13. VANCOMYCIN [Concomitant]
     Dosage: 1.005 GM
     Route: 042
     Dates: start: 20070712, end: 20070712
  14. CIPROFLOXACIN [Concomitant]
     Dosage: 400 MG
     Route: 042
     Dates: start: 20070712, end: 20070712
  15. PROTAMINE [Concomitant]
     Dosage: 430 MG
     Route: 042
     Dates: start: 20070712, end: 20070712
  16. RED BLOOD CELLS [Concomitant]
     Dosage: 2 UNITS
     Route: 042
     Dates: start: 20070712, end: 20070712
  17. CONTRAST MEDIA [Concomitant]
     Dosage: UNK
     Route: 042
     Dates: start: 20070707, end: 20070707
  18. MUCOMYST [Concomitant]
     Dosage: 600 MG/3 ML X 4 DOSES
     Route: 048
     Dates: start: 20070709, end: 20070711
  19. TRASYLOL [Suspect]
     Indication: MITRAL VALVE REPLACEMENT
     Dosage: 1 ML, ONCE, INITIAL TEST DOSE
     Route: 042
     Dates: start: 20070712, end: 20070712
  20. DIAZIDE [Concomitant]
     Dosage: 37.5/25 MG DAILY
     Route: 048
  21. LYRICA [Concomitant]
     Dosage: 50 MG, TID
     Route: 048
  22. ETODOLAC [Concomitant]
     Dosage: 400 MG EVERY 6 HOURS AS NEEDED PAIN
     Route: 048
  23. COUMADIN [Concomitant]
     Dosage: 10 MG DAILY TUESDAY, THURSDAY, SATURDAY + SUNDAY
     Route: 048
  24. LASIX [Concomitant]
     Dosage: 80 MG TIMES ONE
     Route: 042
     Dates: start: 20070707
  25. SOLU-MEDROL [Concomitant]
     Dosage: 250 MG
     Route: 042
     Dates: start: 20070712, end: 20070712
  26. PLASMALYTE [GLUCOSE,POTASSIUM CHLORIDE] [Concomitant]
     Dosage: 16 ML
     Route: 042
     Dates: start: 20070712, end: 20070712
  27. VITAMIN K TAB [Concomitant]
     Dosage: 5 MG, ONCE
     Route: 042
     Dates: start: 20070711
  28. TRASYLOL [Suspect]
     Dosage: 100 ML LOADING DOSE
     Route: 042
     Dates: start: 20070712, end: 20070712
  29. PEPCID [Concomitant]
     Dosage: 20 MG DAILY
  30. PREVACID [Concomitant]
     Dosage: 30 MG, BID
  31. LOVENOX [Concomitant]
     Dosage: 129 MG/0.86 ML ONE DOSE
     Route: 058
     Dates: start: 20070705
  32. LIDOCAINE [Concomitant]
     Dosage: 100 MG
     Route: 042
     Dates: start: 20070712, end: 20070712
  33. NITROGLYCERIN [Concomitant]
     Dosage: 1 INCH EVERY 8 HOURS
     Route: 061
  34. NITROGLYCERIN [Concomitant]
     Dosage: 13.323 MG, UNK
     Route: 042
     Dates: start: 20070712, end: 20070712
  35. HEPARIN [Concomitant]
     Dosage: 5,000 UNITS EVERY 8 HOURS
     Route: 058
  36. TRAMADOL HCL [Concomitant]
     Dosage: 50 MG TID AS NEEDED FOR PAIN
     Route: 048
  37. CIPROFLOXACIN [Concomitant]
     Dosage: 400 MG EVERY 8 HOURS
     Route: 042
     Dates: start: 20070701
  38. ROCEPHIN [Concomitant]
     Dosage: 1 GRAM DAILY
     Route: 042
     Dates: start: 20070705
  39. INSULIN [Concomitant]
     Dosage: 5.638 UNITS/HR
     Route: 042
     Dates: start: 20070712, end: 20070712
  40. MANNITOL [Concomitant]
     Dosage: 12.5 G
     Route: 042
     Dates: start: 20070712, end: 20070712
  41. TRASYLOL [Suspect]
     Dosage: INFUSION OF 25 ML PER HOUR FOR TOTAL OF 108ML/HOUR
     Route: 042
     Dates: start: 20070712, end: 20070712
  42. MECLIZINE [Concomitant]
     Dosage: 25 MG EVERY 6 HOURS DIZZINESS
     Route: 048
  43. COUMADIN [Concomitant]
     Dosage: 15 MG DAILY MONDAY, WEDNESDAY AND FRIDAY
     Route: 048
  44. ALBUMIN (HUMAN) [Concomitant]
     Dosage: 25 G
     Route: 042
     Dates: start: 20070712, end: 20070712

REACTIONS (12)
  - RENAL INJURY [None]
  - UNEVALUABLE EVENT [None]
  - ANHEDONIA [None]
  - RENAL IMPAIRMENT [None]
  - INJURY [None]
  - STRESS [None]
  - FEAR [None]
  - RENAL FAILURE [None]
  - PAIN [None]
  - EMOTIONAL DISTRESS [None]
  - ANXIETY [None]
  - MENTAL DISORDER [None]
